FAERS Safety Report 12480736 (Version 1)
Quarter: 2016Q2

REPORT INFORMATION
  Report Type: Report from Study
  Country: CA (occurrence: CA)
  Receive Date: 20160620
  Receipt Date: 20160620
  Transmission Date: 20160815
  Serious: Yes (Death, Other)
  Sender: FDA-Public Use
  Company Number: CA-009507513-1606CAN007868

PATIENT
  Sex: Male
  Weight: 59.7 kg

DRUGS (1)
  1. PEMBROLIZUMAB. [Suspect]
     Active Substance: PEMBROLIZUMAB
     Indication: MALIGNANT MELANOMA
     Dosage: 2 MG/KG (119.4 MG), Q3 WEEKS
     Route: 042
     Dates: start: 20160322

REACTIONS (1)
  - Death [Fatal]

NARRATIVE: CASE EVENT DATE: 2016
